FAERS Safety Report 8785127 (Version 1)
Quarter: 2012Q4

REPORT INFORMATION
  Report Type: 
  Country: DE (occurrence: DE)
  Receive Date: 20120914
  Receipt Date: 20120914
  Transmission Date: 20130627
  Serious: Yes (Other)
  Sender: FDA-Public Use
  Company Number: DE-VERTEX PHARMACEUTICAL INC.-2012-021125

PATIENT
  Sex: Male

DRUGS (4)
  1. INCIVO [Suspect]
     Indication: HEPATITIS C
     Dosage: part of triple therapy
     Route: 048
     Dates: start: 20120311
  2. PEGASYS [Suspect]
     Indication: HEPATITIS C
     Dosage: 180 ?g, weekly
     Route: 058
     Dates: start: 20120311
  3. PEGASYS [Suspect]
     Dosage: UNK
     Route: 058
     Dates: start: 20120521
  4. COPEGUS [Suspect]
     Indication: HEPATITIS C
     Dosage: part of triple therapy
     Route: 065
     Dates: start: 20120311

REACTIONS (1)
  - Insomnia [Not Recovered/Not Resolved]
